FAERS Safety Report 15138552 (Version 1)
Quarter: 2018Q3

REPORT INFORMATION
  Report Type: Report from Study
  Country: US (occurrence: US)
  Receive Date: 20180713
  Receipt Date: 20180713
  Transmission Date: 20181010
  Serious: Yes (Death)
  Sender: FDA-Public Use
  Company Number: US-CIPLA LTD.-2018US19823

PATIENT

DRUGS (4)
  1. 5?FLUOROURACIL                     /00098801/ [Suspect]
     Active Substance: FLUOROURACIL
     Indication: COLORECTAL CANCER
     Dosage: 500 MG/M2, ONCE WEEKLY ON DAYS 15, 22, 29 AND 36 OF EACH TREATMENT CYCLE
     Route: 042
  2. LEUCOVORIN                         /00566701/ [Suspect]
     Active Substance: LEUCOVORIN
     Indication: COLORECTAL CANCER
     Dosage: 20 MG/M2, ONCE WEEKLY ON DAYS 15, 22, 29 AND 36 OF EACH TREATMENT CYCLE
     Route: 042
  3. IRINOTECAN [Suspect]
     Active Substance: IRINOTECAN
     Indication: COLORECTAL CANCER
     Dosage: 125 MG/M2, ONCE WEEKLY ON DAYS 15, 22, 29 AND 36 OF EACH TREATMENT CYCLE
     Route: 042
  4. CELECOXIB. [Suspect]
     Active Substance: CELECOXIB
     Indication: PRODUCT USED FOR UNKNOWN INDICATION
     Dosage: 400 MG, BID ON DAYS 1 TO 14 THROUGHOUT ALL 6 WEEKS
     Route: 048

REACTIONS (1)
  - Toxicity to various agents [Fatal]
